FAERS Safety Report 24395272 (Version 1)
Quarter: 2024Q4

REPORT INFORMATION
  Report Type: Report from Study
  Country: FR (occurrence: FR)
  Receive Date: 20241004
  Receipt Date: 20241004
  Transmission Date: 20250114
  Serious: Yes (Death)
  Sender: NOVARTIS
  Company Number: FR-002147023-NVSC2024FR194937

PATIENT
  Age: 58 Year
  Sex: Male
  Weight: 100 kg

DRUGS (4)
  1. PLUVICTO [Suspect]
     Active Substance: LUTETIUM LU-177 VIPIVOTIDE TETRAXETAN
     Indication: Prostate cancer
     Dosage: 7129 MBQ, ONCE (CYCLE 1)
     Route: 042
     Dates: start: 20231227, end: 20231227
  2. PLUVICTO [Suspect]
     Active Substance: LUTETIUM LU-177 VIPIVOTIDE TETRAXETAN
     Dosage: 7371 MBQ, ONCE (CYCLE 2)
     Route: 042
     Dates: start: 20240207, end: 20240207
  3. PLUVICTO [Suspect]
     Active Substance: LUTETIUM LU-177 VIPIVOTIDE TETRAXETAN
     Dosage: 6625 MBQ, ONCE (CYCLE 3)
     Route: 042
     Dates: start: 20240314, end: 20240314
  4. PLUVICTO [Suspect]
     Active Substance: LUTETIUM LU-177 VIPIVOTIDE TETRAXETAN
     Dosage: 7467 MBQ, ONCE (CYCLE 3)
     Route: 042
     Dates: start: 20240502, end: 20240502

REACTIONS (2)
  - Death [Fatal]
  - Platelet count decreased [Recovering/Resolving]

NARRATIVE: CASE EVENT DATE: 20240429
